FAERS Safety Report 25110257 (Version 1)
Quarter: 2025Q1

REPORT INFORMATION
  Report Type: Spontaneous
  Country: US (occurrence: US)
  Receive Date: 20250324
  Receipt Date: 20250324
  Transmission Date: 20250409
  Serious: No
  Sender: ALK-ABELLO
  Company Number: US-ALK-ABELLO A/S-2025AA000878

PATIENT

DRUGS (2)
  1. PISTACHIO NUT [Suspect]
     Active Substance: PISTACHIO
     Indication: Skin test
  2. PISTACHIO NUT [Suspect]
     Active Substance: PISTACHIO

REACTIONS (1)
  - False negative investigation result [Unknown]
